FAERS Safety Report 18531473 (Version 1)
Quarter: 2020Q4

REPORT INFORMATION
  Report Type: Other
  Country: CA (occurrence: CA)
  Receive Date: 20201122
  Receipt Date: 20201122
  Transmission Date: 20210114
  Serious: Yes (Other)
  Sender: FDA-Public Use
  Company Number: CA-CELLTRION INC.-2020CA031777

PATIENT

DRUGS (8)
  1. ACTEMRA [Suspect]
     Active Substance: TOCILIZUMAB
     Indication: RHEUMATOID ARTHRITIS
     Dosage: 189 MILLIGRAM, 1 EVERY 4 WEEKS
  2. ACTEMRA [Suspect]
     Active Substance: TOCILIZUMAB
     Indication: RHEUMATOID ARTHRITIS
     Dosage: 395 MILLIGRAM, 1 EVERY 4 WEEKS
     Route: 042
  3. RITUXIMAB (UNKNOWN) [Suspect]
     Active Substance: RITUXIMAB
     Indication: RHEUMATOID ARTHRITIS
     Dosage: 1000 MILLIGRAM
     Route: 041
  4. ACTEMRA [Suspect]
     Active Substance: TOCILIZUMAB
     Dosage: 300 MILLIGRAM, 1 EVERY 4 WEEKS
     Route: 042
  5. FOLIC ACID. [Concomitant]
     Active Substance: FOLIC ACID
  6. PROVERA [Concomitant]
     Active Substance: MEDROXYPROGESTERONE ACETATE
  7. SALAZOPYRIN [Concomitant]
     Active Substance: SULFASALAZINE
  8. METHOTREXATE. [Concomitant]
     Active Substance: METHOTREXATE

REACTIONS (15)
  - Red blood cell sedimentation rate increased [Not Recovered/Not Resolved]
  - Weight increased [Not Recovered/Not Resolved]
  - Cough [Not Recovered/Not Resolved]
  - Headache [Not Recovered/Not Resolved]
  - Tooth abscess [Not Recovered/Not Resolved]
  - Gait disturbance [Not Recovered/Not Resolved]
  - Synovitis [Not Recovered/Not Resolved]
  - C-reactive protein increased [Not Recovered/Not Resolved]
  - Eosinophil count decreased [Not Recovered/Not Resolved]
  - Pain [Not Recovered/Not Resolved]
  - Sinusitis [Not Recovered/Not Resolved]
  - Localised infection [Not Recovered/Not Resolved]
  - Monocyte count increased [Not Recovered/Not Resolved]
  - Rheumatoid arthritis [Not Recovered/Not Resolved]
  - Pharyngitis [Not Recovered/Not Resolved]
